FAERS Safety Report 17210826 (Version 2)
Quarter: 2020Q1

REPORT INFORMATION
  Report Type: Report from Study
  Country: None (occurrence: US)
  Receive Date: 20191227
  Receipt Date: 20200324
  Transmission Date: 20200409
  Serious: Yes (Other)
  Sender: FDA-Public Use
  Company Number: US-ABBVIE-19K-163-3162677-00

PATIENT
  Sex: Male

DRUGS (4)
  1. IMBRUVICA [Suspect]
     Active Substance: IBRUTINIB
     Indication: CHRONIC LYMPHOCYTIC LEUKAEMIA
     Dosage: 280 MG, QD
     Route: 048
     Dates: start: 20190530, end: 20190711
  2. IMBRUVICA [Suspect]
     Active Substance: IBRUTINIB
     Dosage: 280 MG, QD
     Route: 048
     Dates: start: 20190607, end: 20190711
  3. IMBRUVICA [Suspect]
     Active Substance: IBRUTINIB
     Indication: CHRONIC LYMPHOCYTIC LEUKAEMIA
     Dosage: 140 MG, QD
     Route: 048
     Dates: start: 20190712
  4. IMBRUVICA [Suspect]
     Active Substance: IBRUTINIB
     Dosage: 140 MG, QD
     Route: 048
     Dates: start: 20190712

REACTIONS (8)
  - Arterial occlusive disease [Unknown]
  - Skin haemorrhage [Not Recovered/Not Resolved]
  - Arteriosclerosis [Unknown]
  - Oedema peripheral [Unknown]
  - Back pain [Unknown]
  - White blood cell count decreased [Recovering/Resolving]
  - Epistaxis [Not Recovered/Not Resolved]
  - Thrombosis [Unknown]
